FAERS Safety Report 20006995 (Version 1)
Quarter: 2021Q4

REPORT INFORMATION
  Report Type: Spontaneous
  Country: FR (occurrence: FR)
  Receive Date: 20211028
  Receipt Date: 20211028
  Transmission Date: 20220303
  Serious: Yes (Other)
  Sender: FDA-Public Use
  Company Number: FR-MYLANLABS-2021M1076632

PATIENT
  Age: 6 Decade
  Sex: Male

DRUGS (4)
  1. CLOMIPRAMINE [Suspect]
     Active Substance: CLOMIPRAMINE
     Indication: Cataplexy
     Dosage: 75 MILLIGRAM
     Route: 065
  2. PAROXETINE [Suspect]
     Active Substance: PAROXETINE
     Indication: Cataplexy
     Dosage: 40 MILLIGRAM
     Route: 065
  3. MODAFINIL [Concomitant]
     Active Substance: MODAFINIL
     Indication: Cataplexy
     Dosage: 500 MILLIGRAM (TAKEN IN TWO DOSES)
     Route: 065
  4. TROPATEPINE [Concomitant]
     Active Substance: TROPATEPINE
     Indication: Cataplexy
     Dosage: 10 MILLIGRAM
     Route: 065

REACTIONS (2)
  - Drug ineffective for unapproved indication [Unknown]
  - Off label use [Unknown]
